FAERS Safety Report 6055596-3 (Version None)
Quarter: 2009Q1

REPORT INFORMATION
  Report Type: 
  Country: None (occurrence: None)
  Receive Date: 20090128
  Receipt Date: 20090116
  Transmission Date: 20090719
  Serious: Yes (Death)
  Sender: FDA-Public Use
  Company Number: GB-PFIZER INC-2008153833

PATIENT
  Sex: Male

DRUGS (12)
  1. BLINDED *PLACEBO [Suspect]
     Indication: NON-SMALL CELL LUNG CANCER
     Dosage: 37.5 MG, 1X/DAY
     Route: 048
     Dates: start: 20081003, end: 20081126
  2. BLINDED SUNITINIB MALATE [Suspect]
     Indication: NON-SMALL CELL LUNG CANCER
     Dosage: 37.5 MG, 1X/DAY
     Route: 048
     Dates: start: 20081003, end: 20081126
  3. *ERLOTINIB [Suspect]
     Indication: NON-SMALL CELL LUNG CANCER
     Dosage: 150 MG, 1X/DAY
     Route: 048
     Dates: start: 20081003, end: 20081126
  4. ACETYLSALICYLIC ACID [Concomitant]
     Dosage: UNK
     Route: 048
     Dates: end: 20081125
  5. DEMECLOCYCLINE HCL [Concomitant]
     Route: 048
     Dates: start: 20081109
  6. SYMBICORT [Concomitant]
     Route: 048
  7. THIAMINE HCL [Concomitant]
     Route: 048
  8. RAMIPRIL [Concomitant]
     Route: 048
  9. VITAMIN B [Concomitant]
     Route: 048
  10. ONDANSETRON HYDROCHLORIDE [Concomitant]
     Route: 048
  11. VENTOLIN [Concomitant]
     Route: 055
  12. TEMAZEPAM [Concomitant]
     Route: 048

REACTIONS (1)
  - CEREBROVASCULAR ACCIDENT [None]
